FAERS Safety Report 8479907-4 (Version None)
Quarter: 2012Q2

REPORT INFORMATION
  Report Type: 
  Country: None (occurrence: None)
  Receive Date: 20120629
  Receipt Date: 20120622
  Transmission Date: 20120825
  Serious: Yes (Death)
  Sender: FDA-Public Use
  Company Number: US-BAXTER-2012BAX009902

PATIENT
  Sex: Female

DRUGS (3)
  1. NEUPOGEN [Concomitant]
  2. CYCLOPHOSPHAMIDE [Suspect]
     Indication: BREAST CANCER
     Dosage: 2.4 GM/M^2
     Route: 042
  3. DOXORUBICIN HCL [Suspect]
     Indication: BREAST CANCER
     Route: 042

REACTIONS (1)
  - PULMONARY EMBOLISM [None]
